FAERS Safety Report 19273832 (Version 1)
Quarter: 2021Q2

REPORT INFORMATION
  Report Type: Spontaneous
  Country: US (occurrence: US)
  Receive Date: 20210519
  Receipt Date: 20210519
  Transmission Date: 20210717
  Serious: Yes (Hospitalization)
  Sender: FDA-Public Use
  Company Number: None

PATIENT
  Age: 76 Year
  Sex: Male
  Weight: 97 kg

DRUGS (3)
  1. HEPARIN (HEPARIN NA (PORK) 10000UNT/ML INJ) [Suspect]
     Active Substance: HEPARIN SODIUM
     Indication: CEREBROVASCULAR ACCIDENT
     Dosage: ?          OTHER ROUTE:IV?
     Dates: start: 20210224, end: 20210226
  2. HEPARIN (HEPARIN NA (PORK) 10000UNT/ML INJ) [Suspect]
     Active Substance: HEPARIN SODIUM
     Indication: ATRIAL FIBRILLATION
     Dosage: ?          OTHER ROUTE:IV?
     Dates: start: 20210224, end: 20210226
  3. HEPARIN (HEPARIN NA (PORK) 10000UNT/ML INJ) [Suspect]
     Active Substance: HEPARIN SODIUM
     Indication: PULMONARY EMBOLISM
     Dosage: ?          OTHER ROUTE:IV?
     Dates: start: 20210224, end: 20210226

REACTIONS (1)
  - Thrombocytopenia [None]

NARRATIVE: CASE EVENT DATE: 20210226
